FAERS Safety Report 9928639 (Version 1)
Quarter: 2014Q1

REPORT INFORMATION
  Report Type: Spontaneous
  Country: US (occurrence: None)
  Receive Date: 20140226
  Receipt Date: 20140226
  Transmission Date: 20141002
  Serious: Yes (Disabling)
  Sender: FDA-Public Use
  Company Number: None

PATIENT
  Age: 68 Year
  Sex: Male

DRUGS (1)
  1. ACETAMINOPHEN [Suspect]
     Indication: ANAESTHESIA
     Route: 042
     Dates: start: 20130325

REACTIONS (3)
  - Dizziness [None]
  - Headache [None]
  - Balance disorder [None]
